FAERS Safety Report 16030163 (Version 1)
Quarter: 2019Q1

REPORT INFORMATION
  Report Type: Spontaneous
  Country: IT (occurrence: IT)
  Receive Date: 20190304
  Receipt Date: 20190304
  Transmission Date: 20190418
  Serious: Yes (Hospitalization)
  Sender: FDA-Public Use
  Company Number: IT-AMREGENT-20190356

PATIENT
  Age: 65 Year
  Sex: Female

DRUGS (5)
  1. CATAPRESAN [Concomitant]
     Active Substance: CLONIDINE
     Dosage: 300 MG
     Route: 065
  2. ZYLORIC [Concomitant]
     Active Substance: ALLOPURINOL
     Dosage: UNKNOWN
     Route: 065
  3. LASIX [Concomitant]
     Active Substance: FUROSEMIDE
     Dosage: UNKNOWN
     Route: 065
  4. FERINJECT [Suspect]
     Active Substance: FERRIC CARBOXYMALTOSE
     Dosage: 500 MG
     Route: 041
  5. SEVELAMER [Concomitant]
     Active Substance: SEVELAMER
     Dosage: 800 MG
     Route: 065

REACTIONS (3)
  - Bradycardia [Recovering/Resolving]
  - Headache [Recovering/Resolving]
  - Dizziness [Recovering/Resolving]

NARRATIVE: CASE EVENT DATE: 20190123
